FAERS Safety Report 4734483-4 (Version None)
Quarter: 2005Q3

REPORT INFORMATION
  Report Type: 
  Country: None (occurrence: None)
  Receive Date: 20050721
  Receipt Date: 20050419
  Transmission Date: 20060218
  Serious: No
  Sender: FDA-Public Use
  Company Number: 2005SP000240

PATIENT
  Age: 69 Year
  Sex: Female
  Weight: 54.4316 kg

DRUGS (2)
  1. LUNESTA [Suspect]
     Indication: INSOMNIA
  2. AMBIEN [Concomitant]

REACTIONS (3)
  - DRUG INEFFECTIVE [None]
  - MIDDLE INSOMNIA [None]
  - SOMNOLENCE [None]
